FAERS Safety Report 14650233 (Version 2)
Quarter: 2018Q2

REPORT INFORMATION
  Report Type: Spontaneous
  Country: AT (occurrence: AT)
  Receive Date: 20180316
  Receipt Date: 20180404
  Transmission Date: 20180711
  Serious: Yes (Hospitalization, Other)
  Sender: FDA-Public Use
  Company Number: AT-MALLINCKRODT-T201801062

PATIENT
  Age: 63 Year
  Sex: Female

DRUGS (2)
  1. CITRATE [Concomitant]
     Active Substance: CITRIC ACID MONOHYDRATE
     Indication: ANTICOAGULANT THERAPY
     Dosage: ACD-A
     Route: 065
  2. UVADEX [Suspect]
     Active Substance: METHOXSALEN
     Indication: GRAFT VERSUS HOST DISEASE
     Dosage: UNK
     Route: 057
     Dates: start: 20161213, end: 20180110

REACTIONS (3)
  - Thrombosis in device [Unknown]
  - Product use in unapproved indication [Unknown]
  - Chest pain [Unknown]
